FAERS Safety Report 24704301 (Version 1)
Quarter: 2024Q4

REPORT INFORMATION
  Report Type: Spontaneous
  Country: US (occurrence: US)
  Receive Date: 20241206
  Receipt Date: 20241206
  Transmission Date: 20250114
  Serious: Yes (Life-Threatening)
  Sender: TEVA
  Company Number: US-TEVA-VS-3271324

PATIENT

DRUGS (1)
  1. AMPHETAMINE SULFATE\DEXTROAMPHETAMINE [Suspect]
     Active Substance: AMPHETAMINE SULFATE\DEXTROAMPHETAMINE
     Indication: Product used for unknown indication
     Dosage: EXTENDED RELEASE
     Route: 065

REACTIONS (14)
  - Blood pressure increased [Unknown]
  - Hypoaesthesia [Unknown]
  - Pain [Unknown]
  - Fatigue [Unknown]
  - Therapy interrupted [Unknown]
  - Product substitution issue [Unknown]
  - Therapeutic response changed [Unknown]
  - Dyspnoea [Unknown]
  - Anger [Unknown]
  - Heart rate abnormal [Unknown]
  - Headache [Unknown]
  - Irritability [Unknown]
  - Heart rate increased [Unknown]
  - Mood altered [Unknown]
